FAERS Safety Report 9491551 (Version 1)
Quarter: 2013Q1

REPORT INFORMATION
  Report Type: Not Available
  Country: US (occurrence: US)
  Receive Date: 20121219
  Receipt Date: 20121219
  Transmission Date: 20140127
  Serious: No
  Sender: FDA-Public Use
  Company Number: US-LUNDBECK-DKLU1081571

PATIENT
  Sex: Female

DRUGS (4)
  1. ONFI [Suspect]
     Indication: LENNOX-GASTAUT SYNDROME
  2. ONFI [Suspect]
     Indication: ANGELMAN^S SYNDROME
  3. KEPPRA [Concomitant]
     Indication: PRODUCT USED FOR UNKNOWN INDICATION
  4. CLONIDINE [Concomitant]
     Indication: PRODUCT USED FOR UNKNOWN INDICATION

REACTIONS (4)
  - Swelling [Unknown]
  - Pain [Unknown]
  - Abdominal distension [Unknown]
  - Increased appetite [Unknown]
